FAERS Safety Report 10222305 (Version 1)
Quarter: 2014Q2

REPORT INFORMATION
  Report Type: Spontaneous
  Country: HU (occurrence: HU)
  Receive Date: 20140606
  Receipt Date: 20140606
  Transmission Date: 20141212
  Serious: Yes (Life-Threatening, Hospitalization, Other)
  Sender: FDA-Public Use
  Company Number: HU-JNJFOC-20140600389

PATIENT
  Age: 46 Year
  Sex: 0

DRUGS (1)
  1. REMICADE [Suspect]
     Indication: CROHN^S DISEASE
     Route: 042

REACTIONS (6)
  - Drug-induced liver injury [Recovering/Resolving]
  - Mental impairment [Unknown]
  - Cardiopulmonary failure [Unknown]
  - Acidosis [Unknown]
  - Hyperammonaemia [Unknown]
  - Large intestinal stenosis [Unknown]
